FAERS Safety Report 19165874 (Version 2)
Quarter: 2021Q2

REPORT INFORMATION
  Report Type: Spontaneous
  Country: US (occurrence: US)
  Receive Date: 20210421
  Receipt Date: 20210624
  Transmission Date: 20210717
  Serious: Yes (Death, Life-Threatening, Hospitalization, Other)
  Sender: FDA-Public Use
  Company Number: US-PFIZER INC-2021410312

PATIENT
  Age: 46 Year
  Sex: Male

DRUGS (1)
  1. METHOTREXATE SODIUM. [Suspect]
     Active Substance: METHOTREXATE SODIUM
     Indication: DERMATOMYOSITIS
     Dosage: UNK, WEEKLY

REACTIONS (5)
  - Encephalitis brain stem [Fatal]
  - Hydrocephalus [Fatal]
  - Off label use [Unknown]
  - Listeriosis [Fatal]
  - Brain stem haemorrhage [Fatal]
